FAERS Safety Report 6186560-1 (Version None)
Quarter: 2009Q2

REPORT INFORMATION
  Report Type: 
  Country: None (occurrence: None)
  Receive Date: 20090507
  Receipt Date: 20090507
  Transmission Date: 20091009
  Serious: Yes (Hospitalization)
  Sender: FDA-Public Use
  Company Number: None

PATIENT
  Age: 10 Year
  Sex: Female
  Weight: 35 kg

DRUGS (9)
  1. SIROLIMUS ORAL SOLUTION 1 MG:1ML [Suspect]
     Dosage: 2.8 MG BID PO
     Route: 048
     Dates: start: 20090420, end: 20090504
  2. ZOFRAN [Concomitant]
  3. ZANTAC [Concomitant]
  4. BACTRIM DS TABS [Concomitant]
  5. BENADRYL [Concomitant]
  6. CLONIDINE [Concomitant]
  7. RISPERDAL [Concomitant]
  8. IBUPROFEN [Concomitant]
  9. OXYCODONE P.R.N. [Concomitant]

REACTIONS (3)
  - NEUTROPHIL COUNT INCREASED [None]
  - PYREXIA [None]
  - VOMITING [None]
